FAERS Safety Report 24862985 (Version 4)
Quarter: 2025Q1

REPORT INFORMATION
  Report Type: Spontaneous
  Country: US (occurrence: US)
  Receive Date: 20250120
  Receipt Date: 20250314
  Transmission Date: 20250409
  Serious: No
  Sender: PFIZER
  Company Number: US-PFIZER INC-202500009221

PATIENT
  Age: 11 Year
  Sex: Male
  Weight: 27.211 kg

DRUGS (1)
  1. GENOTROPIN [Suspect]
     Active Substance: SOMATROPIN
     Indication: Growth hormone deficiency
     Dosage: 1.0MG, ONCE AT NIGHT BEFORE BED, GIVES SHOT AND ROTATES OFF LEGS AND BUTT
     Dates: start: 202410

REACTIONS (7)
  - Poor quality device used [Unknown]
  - Device information output issue [Unknown]
  - Incorrect dose administered by device [Unknown]
  - Device delivery system issue [Unknown]
  - Needle issue [Unknown]
  - Device leakage [Unknown]
  - Device issue [Unknown]
